FAERS Safety Report 8131389-8 (Version None)
Quarter: 2012Q1

REPORT INFORMATION
  Report Type: 
  Country: None (occurrence: None)
  Receive Date: 20120103
  Receipt Date: 20111012
  Transmission Date: 20120608
  Serious: No
  Sender: FDA-Public Use
  Company Number: AE-2011-001224

PATIENT
  Age: 49 Year
  Sex: Male
  Weight: 97.5 kg

DRUGS (6)
  1. COPEGUS [Concomitant]
  2. THYROID MEDICATION (THYROID THERAPY) [Concomitant]
  3. INCIVEK [Suspect]
     Dosage: 1125 MG (375 MG,1 IN 8 HR),ORAL
     Route: 048
     Dates: start: 20110723
  4. PEGASYS [Concomitant]
  5. LEVOTHYROXINE SODIUM [Concomitant]
  6. OMEPRAZOLE [Concomitant]

REACTIONS (15)
  - HEADACHE [None]
  - NAUSEA [None]
  - PAIN [None]
  - EYELIDS PRURITUS [None]
  - INFLUENZA LIKE ILLNESS [None]
  - DYSPNOEA [None]
  - FATIGUE [None]
  - RASH GENERALISED [None]
  - IMPATIENCE [None]
  - THYROID FUNCTION TEST ABNORMAL [None]
  - ERYTHEMA OF EYELID [None]
  - EYELID PAIN [None]
  - PRURITUS GENERALISED [None]
  - IRRITABILITY [None]
  - AMNESIA [None]
